FAERS Safety Report 13278443 (Version 3)
Quarter: 2017Q2

REPORT INFORMATION
  Report Type: Report from Study
  Country: US (occurrence: US)
  Receive Date: 20170228
  Receipt Date: 20170420
  Transmission Date: 20170830
  Serious: Yes (Hospitalization, Other)
  Sender: FDA-Public Use
  Company Number: PHHO2013US018531

PATIENT
  Age: 56 Year
  Sex: Male
  Weight: 98.7 kg

DRUGS (1)
  1. ARZERRA [Suspect]
     Active Substance: OFATUMUMAB
     Indication: CHRONIC LYMPHOCYTIC LEUKAEMIA
     Dosage: 300 MG, CYCLIC
     Route: 042
     Dates: start: 20120110, end: 20121030

REACTIONS (1)
  - Herpes zoster disseminated [Recovered/Resolved]

NARRATIVE: CASE EVENT DATE: 20121130
